FAERS Safety Report 21078844 (Version 1)
Quarter: 2022Q3

REPORT INFORMATION
  Report Type: Spontaneous
  Country: US (occurrence: US)
  Receive Date: 20220713
  Receipt Date: 20220713
  Transmission Date: 20221027
  Serious: No
  Sender: FDA-Public Use
  Company Number: US-SA-SAC20220708001416

PATIENT
  Age: 22 Year
  Sex: Female

DRUGS (1)
  1. DUPIXENT [Suspect]
     Active Substance: DUPILUMAB
     Dosage: 300 MG
     Route: 058
     Dates: start: 20220613

REACTIONS (6)
  - Lymphadenopathy [Unknown]
  - Pain [Unknown]
  - Abdominal pain [Unknown]
  - Blister [Unknown]
  - Pain [Unknown]
  - Pain in jaw [Unknown]

NARRATIVE: CASE EVENT DATE: 20220623
